FAERS Safety Report 16257746 (Version 3)
Quarter: 2019Q2

REPORT INFORMATION
  Report Type: Report from Study
  Country: US (occurrence: US)
  Receive Date: 20190430
  Receipt Date: 20190620
  Transmission Date: 20190711
  Serious: Yes (Other)
  Sender: FDA-Public Use
  Company Number: US-PFIZER INC-2019145734

PATIENT
  Age: 48 Year
  Sex: Female

DRUGS (1)
  1. IBRANCE [Suspect]
     Active Substance: PALBOCICLIB
     Indication: BREAST CANCER
     Dosage: 125 MG, CYCLIC (DAILY, 21 DAYS OF A 28 DAY CYCLE/ 21 DAYS ON, 7 DAYS OFF)
     Route: 048
     Dates: start: 20190219

REACTIONS (11)
  - Nausea [Recovered/Resolved]
  - White blood cell count decreased [Recovered/Resolved]
  - Leukopenia [Unknown]
  - Headache [Recovered/Resolved]
  - Back pain [Recovered/Resolved]
  - Tinnitus [Not Recovered/Not Resolved]
  - Eye haemorrhage [Recovered/Resolved]
  - Musculoskeletal stiffness [Unknown]
  - Abdominal discomfort [Recovered/Resolved]
  - Neutrophil count decreased [Recovered/Resolved]
  - Ear pain [Not Recovered/Not Resolved]

NARRATIVE: CASE EVENT DATE: 2019
